FAERS Safety Report 7209021-7 (Version None)
Quarter: 2010Q4

REPORT INFORMATION
  Report Type: 
  Country: None (occurrence: None)
  Receive Date: 20101222
  Receipt Date: 20101207
  Transmission Date: 20110411
  Serious: Yes (Other)
  Sender: FDA-Public Use
  Company Number: AUR-APL-2010-03161

PATIENT
  Sex: Male

DRUGS (4)
  1. METFORMIN [Suspect]
     Indication: DIABETES MELLITUS
  2. INSULIN DETEMIR [Suspect]
     Indication: DIABETES MELLITUS
  3. GLIMEPIRIDE [Suspect]
     Indication: DIABETES MELLITUS
  4. SITAGLIPTIN [Suspect]
     Indication: DIABETES MELLITUS

REACTIONS (3)
  - DRUG EFFECT DECREASED [None]
  - HYPOGLYCAEMIA [None]
  - WEIGHT INCREASED [None]
